FAERS Safety Report 20210002 (Version 1)
Quarter: 2021Q4

REPORT INFORMATION
  Report Type: Report from Study
  Country: RO (occurrence: RO)
  Receive Date: 20211221
  Receipt Date: 20211221
  Transmission Date: 20220303
  Serious: Yes (Hospitalization)
  Sender: FDA-Public Use
  Company Number: RO-ABBVIE-21K-135-4203807-00

PATIENT
  Age: 67 Year
  Sex: Male

DRUGS (5)
  1. CARBIDOPA\LEVODOPA [Suspect]
     Active Substance: CARBIDOPA\LEVODOPA
     Indication: Parkinson^s disease
     Dosage: DM=13.00 DC=5.70 ED=2.80 NRED=3; DMN=0.00 DCN=0.00 EDN=0.00 NREDN=0
     Route: 050
     Dates: start: 20210728
  2. CARBIDOPA\LEVODOPA [Suspect]
     Active Substance: CARBIDOPA\LEVODOPA
  3. NEUPRO [Concomitant]
     Active Substance: ROTIGOTINE
     Indication: Parkinson^s disease
     Route: 003
     Dates: start: 20210705
  4. QUETIAPINE [Concomitant]
     Active Substance: QUETIAPINE
     Indication: Depression
     Route: 048
     Dates: start: 20210805
  5. RIVOTRIL [Concomitant]
     Active Substance: CLONAZEPAM
     Indication: Anxiety disorder
     Route: 048
     Dates: start: 20210901

REACTIONS (2)
  - Aggression [Recovering/Resolving]
  - Behaviour disorder [Recovering/Resolving]

NARRATIVE: CASE EVENT DATE: 20211216
